FAERS Safety Report 5372780-2 (Version None)
Quarter: 2007Q2

REPORT INFORMATION
  Report Type: 
  Country: None (occurrence: None)
  Receive Date: 20070621
  Receipt Date: 20060509
  Transmission Date: 20071010
  Serious: Yes (Hospitalization)
  Sender: FDA-Public Use
  Company Number: US-JNJFOC-20060502516

PATIENT
  Age: 59 Year
  Sex: Male
  Weight: 119.296 kg

DRUGS (6)
  1. HALDOL DECANOATE (HALOPERIDOL DECANOATE) INJECTION [Suspect]
     Indication: SCHIZOPHRENIA
     Dosage: 1 IN 1 MONTH, INTRA-MUSCULAR
     Route: 030
     Dates: start: 20000101, end: 20060404
  2. POTASSIUM (POTASSIUM) [Concomitant]
  3. LASIX [Concomitant]
  4. LAMICTAL [Concomitant]
  5. CRESTOR [Concomitant]
  6. MESORIDAZINE (MESORIDAZINE) [Concomitant]

REACTIONS (4)
  - AGITATION [None]
  - MENTAL DISORDER [None]
  - SCHIZOPHRENIA [None]
  - TREMOR [None]
